FAERS Safety Report 12938635 (Version 1)
Quarter: 2016Q4

REPORT INFORMATION
  Report Type: Spontaneous
  Country: JP (occurrence: JP)
  Receive Date: 20161114
  Receipt Date: 20161114
  Transmission Date: 20170207
  Serious: Yes (Hospitalization)
  Sender: FDA-Public Use
  Company Number: JP-PFIZER INC-2016521310

PATIENT
  Age: 71 Year
  Sex: Female
  Weight: 41 kg

DRUGS (2)
  1. METHOTREXATE SODIUM. [Suspect]
     Active Substance: METHOTREXATE SODIUM
     Indication: POLYMYOSITIS
     Dosage: 5 MG, WEEKLY
     Route: 048
  2. PREDONINE [Suspect]
     Active Substance: PREDNISOLONE\PREDNISOLONE ACETATE\PREDNISOLONE SODIUM SUCCINATE
     Indication: POLYMYOSITIS
     Dosage: 10 MG, DAILY
     Route: 048

REACTIONS (2)
  - Impaired healing [Recovered/Resolved]
  - Suture rupture [Recovered/Resolved]

NARRATIVE: CASE EVENT DATE: 201112
